FAERS Safety Report 5132247-3 (Version None)
Quarter: 2006Q4

REPORT INFORMATION
  Report Type: 
  Country: None (occurrence: None)
  Receive Date: 20061017
  Receipt Date: 20060929
  Transmission Date: 20070319
  Serious: Yes (Life-Threatening, Hospitalization)
  Sender: FDA-Public Use
  Company Number: 2006000548

PATIENT
  Age: 28 Year
  Sex: Female

DRUGS (2)
  1. AZASAN [Suspect]
     Indication: CROHN'S DISEASE
     Dosage: 150 MG; DAILY
     Dates: start: 20020101
  2. INFLIXIMAB [Suspect]
     Dosage: 5 MG/KG; INTRAVENOUS
     Route: 042
     Dates: start: 20000101

REACTIONS (3)
  - ANAEMIA [None]
  - HEPATIC NEOPLASM MALIGNANT [None]
  - THROMBOCYTHAEMIA [None]
